FAERS Safety Report 8776483 (Version 1)
Quarter: 2012Q4

REPORT INFORMATION
  Report Type: 
  Country: US (occurrence: US)
  Receive Date: 20120910
  Receipt Date: 20120910
  Transmission Date: 20130627
  Serious: Yes (Other)
  Sender: FDA-Public Use
  Company Number: US-009507513-1208USA011626

PATIENT

DRUGS (2)
  1. PEGINTRON [Suspect]
     Indication: HEPATITIS C
     Dosage: UNK
     Dates: start: 20120716, end: 20120820
  2. REBETOL [Suspect]
     Indication: HEPATITIS C
     Dosage: UNK
     Dates: start: 20120709, end: 20120820

REACTIONS (8)
  - Speech disorder [Unknown]
  - Nausea [Unknown]
  - Balance disorder [Unknown]
  - Vision blurred [Unknown]
  - Visual acuity reduced [Unknown]
  - Dyspnoea [Unknown]
  - Back pain [Unknown]
  - Disturbance in attention [Unknown]
